FAERS Safety Report 18680353 (Version 1)
Quarter: 2020Q4

REPORT INFORMATION
  Report Type: Spontaneous
  Country: FR (occurrence: FR)
  Receive Date: 20201229
  Receipt Date: 20201229
  Transmission Date: 20210114
  Serious: Yes (Life-Threatening)
  Sender: FDA-Public Use
  Company Number: NVSC2020FR343582

PATIENT
  Age: 12 Day
  Sex: Male
  Weight: 3.3 kg

DRUGS (2)
  1. VANCOMYCIN [Suspect]
     Active Substance: VANCOMYCIN
     Indication: PRODUCT USED FOR UNKNOWN INDICATION
     Dosage: 67 MG,QD
     Route: 042
     Dates: start: 20201204, end: 20201206
  2. AMIKACINE [Suspect]
     Active Substance: AMIKACIN
     Indication: FUNGAL PERITONITIS
     Dosage: 35 MG,QD
     Route: 042
     Dates: start: 20201205, end: 20201208

REACTIONS (2)
  - Acute kidney injury [Not Recovered/Not Resolved]
  - Wrong product administered [Recovered/Resolved]

NARRATIVE: CASE EVENT DATE: 20201205
